FAERS Safety Report 9877835 (Version 2)
Quarter: 2014Q2

REPORT INFORMATION
  Report Type: Spontaneous
  Country: IT (occurrence: IT)
  Receive Date: 20140206
  Receipt Date: 20140404
  Transmission Date: 20141212
  Serious: Yes (Hospitalization)
  Sender: FDA-Public Use
  Company Number: IT-SA-2014SA011215

PATIENT
  Age: 81 Year
  Sex: Female

DRUGS (5)
  1. COAPROVEL [Suspect]
     Indication: HYPERTENSION
     Route: 048
     Dates: start: 20130101, end: 20140119
  2. METFORMIN [Concomitant]
     Route: 048
  3. OMEPRAZOLE [Concomitant]
  4. SIMVASTATIN [Concomitant]
  5. CARDIOASPIRIN [Concomitant]

REACTIONS (2)
  - Psychomotor hyperactivity [Recovered/Resolved]
  - Hyponatraemia [Recovered/Resolved]
